FAERS Safety Report 4496689-1 (Version None)
Quarter: 2004Q4

REPORT INFORMATION
  Report Type: 
  Country: None (occurrence: None)
  Receive Date: 20041108
  Receipt Date: 20041108
  Transmission Date: 20050328
  Serious: Yes (Hospitalization)
  Sender: FDA-Public Use
  Company Number: None

PATIENT
  Sex: Male

DRUGS (17)
  1. LOVENOX [Suspect]
     Indication: DEEP VENOUS THROMBOSIS PROPHYLAXIS
     Dosage: 40MG SUBQ
     Route: 058
     Dates: start: 20040702, end: 20040703
  2. ACETAMINOPHEN [Concomitant]
  3. ALPRAZOLAM [Concomitant]
  4. AMIODARONE [Concomitant]
  5. DIGOXIN [Concomitant]
  6. FESO4 [Concomitant]
  7. FOLIC ACID [Concomitant]
  8. FOSINOPRIL SODIUM [Concomitant]
  9. FUROSEMIDE [Concomitant]
  10. LOPERAMIDE HCL [Concomitant]
  11. METOPROLOL [Concomitant]
  12. NITROGLYCERIN [Concomitant]
  13. OMEPRAZOLE [Concomitant]
  14. KCL TAB [Concomitant]
  15. SIMVASTATIN [Concomitant]
  16. TEMAZEPAM [Concomitant]
  17. VANCOMYCIN [Concomitant]

REACTIONS (1)
  - HEPARIN-INDUCED THROMBOCYTOPENIA [None]
